FAERS Safety Report 5171657-5 (Version None)
Quarter: 2006Q4

REPORT INFORMATION
  Report Type: 
  Country: None (occurrence: None)
  Receive Date: 20061205
  Receipt Date: 20061120
  Transmission Date: 20070319
  Serious: Yes (Hospitalization)
  Sender: FDA-Public Use
  Company Number: 2005063918

PATIENT
  Age: 31 Year
  Sex: Female
  Weight: 93.441 kg

DRUGS (8)
  1. SUTENT [Suspect]
     Indication: GASTROINTESTINAL STROMAL TUMOUR
     Dosage: SEE IMAGE
     Route: 048
     Dates: end: 20050328
  2. SUTENT [Suspect]
     Indication: GASTROINTESTINAL STROMAL TUMOUR
     Dosage: SEE IMAGE
     Route: 048
     Dates: start: 20031202
  3. LISINOPRIL [Suspect]
     Indication: HYPERTENSION
     Dosage: 10 MG (10 MG, 1 IN 1 D), ORAL
     Route: 048
     Dates: start: 20031223
  4. SYNTHROID [Concomitant]
  5. ARANESP [Concomitant]
  6. PROZAC [Concomitant]
  7. HYOSCYAMINE (HYOSCYAMINE) [Concomitant]
  8. VITAMIN B12 [Concomitant]

REACTIONS (5)
  - ADVERSE EVENT [None]
  - ANGIONEUROTIC OEDEMA [None]
  - DRUG HYPERSENSITIVITY [None]
  - HYPERTENSIVE CRISIS [None]
  - THERAPEUTIC RESPONSE UNEXPECTED WITH DRUG SUBSTITUTION [None]
